FAERS Safety Report 6761103-X (Version None)
Quarter: 2010Q2

REPORT INFORMATION
  Report Type: 
  Country: None (occurrence: None)
  Receive Date: 20100608
  Receipt Date: 20100525
  Transmission Date: 20101027
  Serious: Yes (Other)
  Sender: FDA-Public Use
  Company Number: US-ELI_LILLY_AND_COMPANY-US201005007110

PATIENT
  Sex: Female

DRUGS (15)
  1. FORTEO [Suspect]
     Indication: OSTEOPOROSIS
     Dosage: 20 UG, DAILY (1/D)
     Route: 058
     Dates: start: 20090501
  2. METFORMIN HCL [Concomitant]
     Dosage: 1000 MG, UNK
  3. SYNTHROID [Concomitant]
  4. TAMOXIFEN CITRATE [Concomitant]
  5. DITROPAN /USA/ [Concomitant]
  6. DIOVAN [Concomitant]
  7. LEXAPRO [Concomitant]
  8. LYRICA [Concomitant]
  9. ZETIA [Concomitant]
  10. PRECOSE [Concomitant]
  11. TYLENOL                                 /SCH/ [Concomitant]
  12. ACTOS [Concomitant]
  13. LEVEMIR [Concomitant]
  14. CALTRATE /00108001/ [Concomitant]
  15. CENTRUM [Concomitant]

REACTIONS (5)
  - BACK PAIN [None]
  - CHOLECYSTECTOMY [None]
  - INJECTION SITE HAEMATOMA [None]
  - INJECTION SITE HAEMORRHAGE [None]
  - MASTECTOMY [None]
